FAERS Safety Report 17892538 (Version 1)
Quarter: 2020Q2

REPORT INFORMATION
  Report Type: Spontaneous
  Country: BR (occurrence: BR)
  Receive Date: 20200612
  Receipt Date: 20200612
  Transmission Date: 20200714
  Serious: Yes (Other)
  Sender: FDA-Public Use
  Company Number: BR-SAMSUNG BIOEPIS-SB-2020-15325

PATIENT
  Age: 78 Year
  Sex: Female

DRUGS (1)
  1. BRENZYS [Suspect]
     Active Substance: ETANERCEPT
     Indication: PRODUCT USED FOR UNKNOWN INDICATION
     Dosage: UNKNOWN
     Route: 065
     Dates: start: 201911

REACTIONS (3)
  - Product substitution issue [Unknown]
  - Dry mouth [Not Recovered/Not Resolved]
  - Rheumatoid arthritis [Not Recovered/Not Resolved]
